FAERS Safety Report 10280685 (Version 3)
Quarter: 2014Q3

REPORT INFORMATION
  Report Type: Spontaneous
  Country: NO (occurrence: NO)
  Receive Date: 20140707
  Receipt Date: 20140723
  Transmission Date: 20150326
  Serious: Yes (Death, Hospitalization, Other)
  Sender: FDA-Public Use
  Company Number: NO-PFIZER INC-2014184669

PATIENT
  Age: 70 Year
  Sex: Male

DRUGS (14)
  1. FLUCONAZOLE. [Interacting]
     Active Substance: FLUCONAZOLE
     Indication: FUNGAL INFECTION
     Dosage: 200 MG, 1X/DAY
     Route: 048
     Dates: start: 20140411, end: 20140508
  2. CORDARONE [Interacting]
     Active Substance: AMIODARONE HYDROCHLORIDE
     Dosage: 200 MG, 1X/DAY
     Route: 048
     Dates: end: 20140511
  3. MEDROL [Interacting]
     Active Substance: METHYLPREDNISOLONE
     Dosage: 48 MG, DAILY
     Route: 048
     Dates: start: 20140428
  4. LANSOPRAZOLE. [Interacting]
     Active Substance: LANSOPRAZOLE
     Indication: PROPHYLAXIS AGAINST GASTROINTESTINAL ULCER
     Dosage: 30 MG, 1X/DAY (LANSOPRAZOLE WAS GIVEN UP TO 09MAY2014, THEREAFTER SWITCHED TO ESOMEPRAZOLE)
     Route: 048
     Dates: start: 20140425, end: 20140509
  5. IMMUNOGLOBULIN HUMAN NORMAL [Concomitant]
     Active Substance: HUMAN IMMUNOGLOBULIN G
     Dosage: UNK
  6. PREDNISOLON [Interacting]
     Active Substance: PREDNISOLONE
     Indication: RHEUMATOID ARTHRITIS
     Dosage: 50 MG, 1X/DAY
     Route: 048
     Dates: start: 20140429, end: 20140526
  7. FOLSYRE NAF [Concomitant]
     Active Substance: FOLIC ACID
     Indication: PROPHYLAXIS
     Dosage: 1 MG, 1X/DAY
     Route: 048
  8. ALBYL-E [Concomitant]
     Active Substance: ASPIRIN\MAGNESIUM OXIDE
     Dosage: 160 MG, 1X/DAY
     Route: 048
  9. MEDROL [Suspect]
     Active Substance: METHYLPREDNISOLONE
     Indication: RHEUMATOID ARTHRITIS
     Dosage: 48 MG, 1X/DAY
     Route: 048
     Dates: start: 201312, end: 20140426
  10. MEDROL [Interacting]
     Active Substance: METHYLPREDNISOLONE
     Dosage: HIGH DOSE
     Dates: start: 20140426, end: 20140428
  11. METHOTREXATE SODIUM. [Interacting]
     Active Substance: METHOTREXATE SODIUM
     Indication: RHEUMATOID ARTHRITIS
     Dosage: 10 MG, WEEKLY
     Route: 048
     Dates: start: 20010307, end: 20140501
  12. CALCIGRAN FORTE [Concomitant]
     Indication: OSTEOPOROSIS PROPHYLAXIS
     Dosage: 1000MG, 1X/DAY
     Route: 048
     Dates: end: 20140502
  13. IBUX [Concomitant]
     Active Substance: IBUPROFEN
     Dosage: 600 MG, 3X/DAY
     Route: 048
     Dates: start: 20140411, end: 20140413
  14. REMERON [Concomitant]
     Active Substance: MIRTAZAPINE
     Indication: DEPRESSION
     Dosage: 30MG, 1X/DAY
     Route: 048
     Dates: end: 20140502

REACTIONS (9)
  - Immunosuppression [Fatal]
  - Acute respiratory distress syndrome [Fatal]
  - Pancytopenia [Fatal]
  - Myasthenic syndrome [Unknown]
  - Myasthenia gravis [Unknown]
  - Pneumocystis jirovecii pneumonia [Unknown]
  - Sick sinus syndrome [Unknown]
  - Drug interaction [Fatal]
  - Urosepsis [Unknown]

NARRATIVE: CASE EVENT DATE: 201108
